FAERS Safety Report 9946106 (Version 2)
Quarter: 2015Q1

REPORT INFORMATION
  Report Type: Spontaneous
  Country: US (occurrence: US)
  Receive Date: 20140303
  Receipt Date: 20150227
  Transmission Date: 20150721
  Serious: Yes (Other)
  Sender: FDA-Public Use
  Company Number: US-AMGEN-USASP2013090644

PATIENT
  Age: 49 Year
  Sex: Male

DRUGS (1)
  1. ENBREL [Suspect]
     Active Substance: ETANERCEPT
     Indication: ANKYLOSING SPONDYLITIS
     Dosage: 50 MG, QWK
     Route: 065
     Dates: start: 20130927, end: 20140122

REACTIONS (2)
  - Lower respiratory tract infection [Recovered/Resolved]
  - Sinusitis [Recovered/Resolved]

NARRATIVE: CASE EVENT DATE: 20131110
